FAERS Safety Report 10588099 (Version 5)
Quarter: 2017Q4

REPORT INFORMATION
  Report Type: Report from Study
  Country: US (occurrence: US)
  Receive Date: 20141117
  Receipt Date: 20171031
  Transmission Date: 20180320
  Serious: Yes (Death, Hospitalization, Other)
  Sender: FDA-Public Use
  Company Number: US-ACTELION-A-US2014-99176

PATIENT
  Age: 70 Year
  Sex: Male
  Weight: 97.52 kg

DRUGS (12)
  1. ATORVASTATIN [Concomitant]
     Active Substance: ATORVASTATIN
     Dosage: 40 MG, QD
     Dates: start: 2011
  2. FUROSEMIDE. [Concomitant]
     Active Substance: FUROSEMIDE
     Dosage: 40 MG, PRN
     Dates: start: 2011
  3. TRACLEER [Suspect]
     Active Substance: BOSENTAN
     Indication: PULMONARY ARTERIAL HYPERTENSION
     Dosage: 125 MG, BID
     Route: 048
     Dates: start: 2011
  4. DILTIAZEM. [Concomitant]
     Active Substance: DILTIAZEM
     Dosage: 180 MG, QD
     Dates: start: 201105
  5. ADVAIR HFA [Concomitant]
     Active Substance: FLUTICASONE PROPIONATE\SALMETEROL XINAFOATE
     Dosage: 1 PUFF, QAM
  6. ALBUTEROL SULFATE. [Concomitant]
     Active Substance: ALBUTEROL SULFATE
     Dosage: 20 MINUTES BEFORE EXERCISE
     Dates: start: 201405
  7. CENTRUM SILVER [Concomitant]
     Active Substance: MINERALS\VITAMINS
     Dosage: 1 TABLET, ONCE DAILY
  8. MUCINEX [Concomitant]
     Active Substance: GUAIFENESIN
     Dosage: 1200, 1 DAY
     Dates: start: 2010
  9. ISOSORBIDE MONONITRATE. [Concomitant]
     Active Substance: ISOSORBIDE MONONITRATE
     Dosage: 30 MG, QD
     Dates: start: 2010
  10. COUMADIN [Suspect]
     Active Substance: WARFARIN SODIUM
     Indication: PRODUCT USED FOR UNKNOWN INDICATION
     Dosage: 4-6 MG DAILY
     Route: 065
     Dates: start: 201105
  11. BABY ASPIRIN [Concomitant]
     Active Substance: ASPIRIN
     Dosage: 81 MG, UNK
     Dates: start: 2007
  12. TYVASO [Concomitant]
     Active Substance: TREPROSTINIL
     Dosage: 12 PUFF, QID
     Dates: start: 201301

REACTIONS (7)
  - Drug dose omission [Unknown]
  - Weight decreased [Not Recovered/Not Resolved]
  - Death [Fatal]
  - Haemoptysis [Not Recovered/Not Resolved]
  - Cardiac arrest [Unknown]
  - Respiratory arrest [Unknown]
  - Coronary artery occlusion [Not Recovered/Not Resolved]
